FAERS Safety Report 7419582-0 (Version None)
Quarter: 2011Q1

REPORT INFORMATION
  Report Type: 
  Country: None (occurrence: None)
  Receive Date: 20110302
  Receipt Date: 20101028
  Transmission Date: 20110831
  Serious: No
  Sender: FDA-Public Use
  Company Number: 021343

PATIENT
  Sex: Male

DRUGS (5)
  1. CIMZIA [Suspect]
     Indication: CROHN'S DISEASE
     Dosage: (200 MG 1X/2 WEEKS SUBCUTANEOUS)
     Route: 058
     Dates: start: 20090105
  2. FOLIC ACID [Concomitant]
  3. METHOTREXATE [Concomitant]
  4. LEVAQUIN [Concomitant]
  5. ALINIA [Concomitant]

REACTIONS (2)
  - CROHN'S DISEASE [None]
  - HYPOTENSION [None]
